FAERS Safety Report 6413058-5 (Version None)
Quarter: 2009Q4

REPORT INFORMATION
  Report Type: 
  Country: None (occurrence: None)
  Receive Date: 20091023
  Receipt Date: 20091023
  Transmission Date: 20100525
  Serious: Yes (Hospitalization)
  Sender: FDA-Public Use
  Company Number: None

PATIENT
  Sex: Female
  Weight: 76.5 kg

DRUGS (6)
  1. TAXOL [Suspect]
     Dosage: 247 MG
     Dates: start: 20090727
  2. TOPOTECAN [Suspect]
     Dosage: 3.18 MG
     Dates: start: 20090729
  3. CELEXA [Concomitant]
  4. FENTANYL-50 [Concomitant]
  5. MOTRIN [Concomitant]
  6. OXYCODONE [Concomitant]
     Dosage: PRN

REACTIONS (5)
  - CONSTIPATION [None]
  - DISCOMFORT [None]
  - DYSPNOEA [None]
  - NO THERAPEUTIC RESPONSE [None]
  - PAIN [None]
